FAERS Safety Report 6817162-9 (Version None)
Quarter: 2010Q3

REPORT INFORMATION
  Report Type: 
  Country: None (occurrence: None)
  Receive Date: 20100706
  Receipt Date: 20100623
  Transmission Date: 20110219
  Serious: Yes (Other)
  Sender: FDA-Public Use
  Company Number: CA-BAYER-201023095NA

PATIENT
  Sex: Female

DRUGS (4)
  1. MIRENA [Suspect]
     Indication: PRODUCT USED FOR UNKNOWN INDICATION
     Dosage: FREQUENCY: CONTINUOUS
     Route: 015
     Dates: start: 20040801
  2. VIT C [Concomitant]
  3. CALCIUM CARBONATE [Concomitant]
  4. MAGNESIUM [Concomitant]

REACTIONS (8)
  - ABDOMINAL PAIN LOWER [None]
  - ANXIETY [None]
  - BREAST CYST [None]
  - BREAST PAIN [None]
  - BREAST TENDERNESS [None]
  - CERVICAL POLYP [None]
  - COMPLICATION OF DEVICE REMOVAL [None]
  - SKIN DISORDER [None]
